FAERS Safety Report 14173264 (Version 1)
Quarter: 2017Q4

REPORT INFORMATION
  Report Type: Spontaneous
  Country: US (occurrence: US)
  Receive Date: 20171109
  Receipt Date: 20171109
  Transmission Date: 20180321
  Serious: No
  Sender: FDA-Public Use
  Company Number: US-ASTRAZENECA-2017SF13673

PATIENT
  Sex: Female
  Weight: 70.8 kg

DRUGS (1)
  1. XIGDUO XR [Suspect]
     Active Substance: DAPAGLIFLOZIN PROPANEDIOL\METFORMIN HYDROCHLORIDE
     Indication: GLYCOSYLATED HAEMOGLOBIN
     Dosage: DAILY
     Route: 048
     Dates: end: 201710

REACTIONS (3)
  - Burning sensation [Unknown]
  - Abdominal pain [Unknown]
  - Pruritus [Unknown]
